FAERS Safety Report 7971661-5 (Version None)
Quarter: 2011Q4

REPORT INFORMATION
  Report Type: 
  Country: None (occurrence: None)
  Receive Date: 20111212
  Receipt Date: 20111206
  Transmission Date: 20120403
  Serious: Yes (Hospitalization)
  Sender: FDA-Public Use
  Company Number: BR-ABBOTT-11P-020-0707500-00

PATIENT
  Sex: Female
  Weight: 57 kg

DRUGS (5)
  1. HUMIRA [Suspect]
     Route: 058
     Dates: end: 20101101
  2. HUMIRA [Suspect]
     Indication: PSORIATIC ARTHROPATHY
     Route: 058
     Dates: start: 20100828, end: 20111101
  3. HEXIDINE [Concomitant]
     Indication: ALLERGY PROPHYLAXIS
     Route: 048
     Dates: start: 20100501
  4. LORATADINE [Concomitant]
     Indication: ALLERGY PROPHYLAXIS
     Route: 048
     Dates: start: 20100501
  5. CLOBETASOL [Concomitant]
     Indication: PROMOTION OF WOUND HEALING
     Route: 062

REACTIONS (8)
  - SKIN EXFOLIATION [None]
  - WOUND [None]
  - BLOOD POTASSIUM DECREASED [None]
  - PYREXIA [None]
  - MUSCLE SPASMS [None]
  - CONDITION AGGRAVATED [None]
  - PSORIATIC ARTHROPATHY [None]
  - OEDEMA PERIPHERAL [None]
